FAERS Safety Report 6548816-X (Version None)
Quarter: 2010Q1

REPORT INFORMATION
  Report Type: 
  Country: None (occurrence: None)
  Receive Date: 20100124
  Receipt Date: 20091124
  Transmission Date: 20100710
  Serious: No
  Sender: FDA-Public Use
  Company Number: US-ALLERGAN-0916370US

PATIENT
  Sex: Female

DRUGS (7)
  1. RESTASIS [Suspect]
     Indication: DRY EYE
     Dosage: UNK
     Route: 047
     Dates: start: 20090801
  2. AVAPRO [Concomitant]
     Dosage: UNK
  3. CHLORTHALIDONE [Concomitant]
     Dosage: 12.5 MG, QD
  4. VITAMINS [Concomitant]
     Dosage: UNK
  5. MULTIDOPHILUS [Concomitant]
     Dosage: UNK
  6. SYSTANE [Concomitant]
     Dosage: UNK
  7. BABY ASPIRIN [Concomitant]
     Dosage: UNK

REACTIONS (2)
  - EYE PAIN [None]
  - OCULAR HYPERAEMIA [None]
